FAERS Safety Report 16517667 (Version 1)
Quarter: 2019Q3

REPORT INFORMATION
  Report Type: Spontaneous
  Country: NL (occurrence: NL)
  Receive Date: 20190702
  Receipt Date: 20190702
  Transmission Date: 20191004
  Serious: Yes (Other)
  Sender: FDA-Public Use
  Company Number: NL-MYLANLABS-2019M1061801

PATIENT
  Sex: Female
  Weight: 58 kg

DRUGS (6)
  1. VERAPAMIL [Suspect]
     Active Substance: VERAPAMIL HYDROCHLORIDE
     Indication: ATRIAL FIBRILLATION
     Dosage: 1X PER DAG 1 STUK
     Route: 048
     Dates: start: 20180110, end: 20180329
  2. HYDROQUININE [Concomitant]
     Dosage: ZONODIG
  3. MOMETASON [Concomitant]
     Active Substance: MOMETASONE FUROATE
     Dosage: 2X DAAGS 1 DOSIS (MOMETASON NEUSSPRAY 50UG/DO)
  4. TERBUTALINE [Concomitant]
     Active Substance: TERBUTALINE
     Dosage: 1X DAAGS 1 DOSIS (TERBUTALINE INHALATIEPDR 0,25MG/DO )
  5. DABIGATRAN ETEXILATE [Concomitant]
     Active Substance: DABIGATRAN ETEXILATE
     Dosage: 2DD1
  6. ENALAPRIL W/HYDROCHLOROTHIAZIDE [Concomitant]
     Active Substance: ENALAPRIL\HYDROCHLOROTHIAZIDE
     Dosage: 1DD1

REACTIONS (1)
  - Hepatitis [Recovered/Resolved]
